FAERS Safety Report 25905854 (Version 1)
Quarter: 2025Q4

REPORT INFORMATION
  Report Type: Spontaneous
  Country: EU (occurrence: EU)
  Receive Date: 20251010
  Receipt Date: 20251010
  Transmission Date: 20260117
  Serious: Yes (Disabling, Other)
  Sender: AUROBINDO
  Company Number: EU-LRB-01084346

PATIENT
  Age: 72 Year
  Sex: Female
  Weight: 76 kg

DRUGS (2)
  1. CIPROFLOXACIN [Suspect]
     Active Substance: CIPROFLOXACIN
     Indication: Cystitis
     Dosage: 1 DOSAGE FORM
     Route: 048
     Dates: start: 20241226
  2. CLOBETASOL [Interacting]
     Active Substance: CLOBETASOL
     Indication: Lichen sclerosus
     Dosage: 1 DOSAGE FORM (OINTMENT, 0.5 MG/G (MILLIGRAMS PER GRAM)
     Route: 003
     Dates: start: 20240828

REACTIONS (4)
  - Muscle rupture [Not Recovered/Not Resolved]
  - Tendon injury [Not Recovered/Not Resolved]
  - Pain in extremity [Not Recovered/Not Resolved]
  - Drug interaction [Not Recovered/Not Resolved]
